FAERS Safety Report 6386546-8 (Version None)
Quarter: 2009Q4

REPORT INFORMATION
  Report Type: 
  Country: None (occurrence: None)
  Receive Date: 20091002
  Receipt Date: 20090410
  Transmission Date: 20100525
  Serious: No
  Sender: FDA-Public Use
  Company Number: US-ASTRAZENECA-2009UW09119

PATIENT
  Age: 50 Year
  Sex: Female
  Weight: 63.5 kg

DRUGS (4)
  1. ARIMIDEX [Suspect]
     Dosage: TOOK 3 PILLS ONE PER DAY
     Route: 048
  2. PROZAC [Concomitant]
  3. CALTRATE [Concomitant]
  4. ACTONEL [Concomitant]

REACTIONS (1)
  - MADAROSIS [None]
